FAERS Safety Report 7020698-1 (Version None)
Quarter: 2010Q3

REPORT INFORMATION
  Report Type: 
  Country: None (occurrence: None)
  Receive Date: 20100929
  Receipt Date: 20100921
  Transmission Date: 20110219
  Serious: Yes (Hospitalization)
  Sender: FDA-Public Use
  Company Number: PHHY2009TW60894

PATIENT
  Sex: Male

DRUGS (1)
  1. GLEEVEC [Suspect]
     Indication: GASTROINTESTINAL STROMAL TUMOUR
     Dosage: 400 MG, UNK
     Route: 048
     Dates: start: 20081030

REACTIONS (11)
  - DYSURIA [None]
  - FATIGUE [None]
  - HAEMATURIA [None]
  - JOINT FLUID DRAINAGE [None]
  - MUSCLE SPASMS [None]
  - OEDEMA PERIPHERAL [None]
  - PAIN [None]
  - PYREXIA [None]
  - SURGERY [None]
  - WOUND COMPLICATION [None]
  - WOUND SECRETION [None]
